FAERS Safety Report 7673806-3 (Version None)
Quarter: 2011Q3

REPORT INFORMATION
  Report Type: 
  Country: None (occurrence: None)
  Receive Date: 20110810
  Receipt Date: 20110808
  Transmission Date: 20111222
  Serious: Yes (Death)
  Sender: FDA-Public Use
  Company Number: PHFR2011GB04677

PATIENT
  Sex: Male

DRUGS (1)
  1. CLOZAPINE [Suspect]
     Indication: SCHIZOPHRENIA
     Dates: start: 19940622

REACTIONS (2)
  - INTESTINAL PERFORATION [None]
  - GASTROINTESTINAL INFECTION [None]
